FAERS Safety Report 18414680 (Version 1)
Quarter: 2020Q4

REPORT INFORMATION
  Report Type: Spontaneous
  Country: IN (occurrence: IN)
  Receive Date: 20201022
  Receipt Date: 20201022
  Transmission Date: 20210114
  Serious: No
  Sender: FDA-Public Use
  Company Number: IN-ALKEM LABORATORIES LIMITED-IN-ALKEM-2020-05573

PATIENT
  Age: 18 Year
  Sex: Female

DRUGS (1)
  1. AZATHIOPRINE. [Suspect]
     Active Substance: AZATHIOPRINE
     Indication: IMMUNE THROMBOCYTOPENIA
     Dosage: 1.5 MILLIGRAM/KILOGRAM, QD
     Route: 065

REACTIONS (1)
  - Alopecia [Recovered/Resolved]
